FAERS Safety Report 8000853-4 (Version None)
Quarter: 2011Q4

REPORT INFORMATION
  Report Type: 
  Country: None (occurrence: None)
  Receive Date: 20111222
  Receipt Date: 20111213
  Transmission Date: 20120403
  Serious: Yes (Other)
  Sender: FDA-Public Use
  Company Number: US-SANOFI-AVENTIS-2011SA081845

PATIENT
  Sex: Male

DRUGS (5)
  1. SOLOSTAR [Suspect]
  2. OPTICLICK [Suspect]
     Dosage: 3-4 YEARS
  3. LANTUS [Suspect]
     Route: 058
  4. SOLOSTAR [Suspect]
  5. APIDRA [Suspect]
     Dosage: 3-4 YEARS AGO
     Route: 058

REACTIONS (2)
  - DIPLOPIA [None]
  - CEREBROVASCULAR ACCIDENT [None]
